FAERS Safety Report 5902223-9 (Version None)
Quarter: 2008Q3

REPORT INFORMATION
  Report Type: 
  Country: None (occurrence: None)
  Receive Date: 20080929
  Receipt Date: 20080917
  Transmission Date: 20090109
  Serious: Yes (Hospitalization)
  Sender: FDA-Public Use
  Company Number: JP-PFIZER INC-2008081376

PATIENT
  Age: 39 Year
  Sex: Male

DRUGS (2)
  1. ZOLOFT [Suspect]
  2. LENDORMIN [Suspect]

REACTIONS (8)
  - ASPARTATE AMINOTRANSFERASE INCREASED [None]
  - BLOOD CREATINE PHOSPHOKINASE INCREASED [None]
  - DEHYDRATION [None]
  - HEPATITIS ACUTE [None]
  - LIVER DISORDER [None]
  - MALAISE [None]
  - MYALGIA [None]
  - PYREXIA [None]
